FAERS Safety Report 5922546-7 (Version None)
Quarter: 2008Q4

REPORT INFORMATION
  Report Type: 
  Country: None (occurrence: None)
  Receive Date: 20081017
  Receipt Date: 20081009
  Transmission Date: 20090506
  Serious: Yes (Other)
  Sender: FDA-Public Use
  Company Number: PHHY2008DE17136

PATIENT
  Sex: Female

DRUGS (4)
  1. ESTRAGEST TTS [Suspect]
     Indication: HORMONE REPLACEMENT THERAPY
     Dosage: UNK
     Route: 062
     Dates: start: 20080801, end: 20080801
  2. DIOVAN HCT [Concomitant]
     Indication: HYPERTENSION
     Dosage: UNK
     Route: 048
     Dates: start: 20080701
  3. ACETYLSALICYLIC ACID SRT [Concomitant]
  4. AMLOCLAIR [Concomitant]

REACTIONS (2)
  - DEPRESSION [None]
  - FEELING ABNORMAL [None]
